FAERS Safety Report 7676329-0 (Version None)
Quarter: 2011Q3

REPORT INFORMATION
  Report Type: 
  Country: None (occurrence: None)
  Receive Date: 20110805
  Receipt Date: 20110727
  Transmission Date: 20111222
  Serious: Yes (Death)
  Sender: FDA-Public Use
  Company Number: US-2011-10535

PATIENT
  Age: 50 Year
  Sex: Female

DRUGS (7)
  1. TACROLIMUS [Concomitant]
  2. FLUCONAZOLE [Concomitant]
  3. BUSULFEX [Suspect]
     Indication: STEM CELL TRANSPLANT
     Dosage: 0.8 MG/KG, DAILY DOSE, INTRAVENOUS
     Route: 042
  4. CLOFARABINE (CLOFARABINE) [Suspect]
     Indication: STEM CELL TRANSPLANT
     Dosage: 30 MG/M2, DAILY DOSE, INTRAVENOUS
     Route: 042
  5. ACYCLOVIR [Concomitant]
  6. SIROLIMUS (RAPAMUNE) [Concomitant]
  7. CIPROFLOXACIN (CIPROFLOXACIN LACTATE) [Concomitant]

REACTIONS (2)
  - NEOPLASM PROGRESSION [None]
  - ACUTE MYELOID LEUKAEMIA [None]
